FAERS Safety Report 10744659 (Version 1)
Quarter: 2015Q1

REPORT INFORMATION
  Report Type: Spontaneous
  Country: US (occurrence: None)
  Receive Date: 20150126
  Receipt Date: 20150126
  Transmission Date: 20150721
  Serious: No
  Sender: FDA-Public Use
  Company Number: None

PATIENT

DRUGS (1)
  1. FELODIPINE. [Suspect]
     Active Substance: FELODIPINE
     Indication: HYPERTENSION
     Dosage: 1/2 TABLET ONCE DAYLY
     Dates: start: 20140728, end: 20141112

REACTIONS (3)
  - Pain [None]
  - Arthritis [None]
  - Lupus-like syndrome [None]

NARRATIVE: CASE EVENT DATE: 20140810
